FAERS Safety Report 6125195-3 (Version None)
Quarter: 2009Q1

REPORT INFORMATION
  Report Type: 
  Country: None (occurrence: None)
  Receive Date: 20090318
  Receipt Date: 20090316
  Transmission Date: 20090719
  Serious: Yes (Death, Hospitalization, Other)
  Sender: FDA-Public Use
  Company Number: 2004-12-0985

PATIENT
  Age: 81 Year
  Sex: Female
  Weight: 70 kg

DRUGS (8)
  1. INTRON A [Suspect]
     Indication: RENAL CANCER METASTATIC
     Dosage: TIW; UNK
     Dates: start: 20020702, end: 20030902
  2. MULTI-VITAMINS [Concomitant]
  3. MAXAIR [Concomitant]
  4. CIPROFLOXACIN HCL [Concomitant]
  5. PENICILLIN NOS [Concomitant]
  6. KEFLEX /00145501/ [Concomitant]
  7. BENADRYL [Concomitant]
  8. ANTIBIOTICS [Concomitant]

REACTIONS (61)
  - ABDOMINAL PAIN [None]
  - ABDOMINAL PAIN UPPER [None]
  - ABDOMINAL RIGIDITY [None]
  - ABNORMAL BEHAVIOUR [None]
  - AGITATION [None]
  - AMNESIA [None]
  - ANAEMIA [None]
  - ANOREXIA [None]
  - ANXIETY [None]
  - APHASIA [None]
  - ASTHENIA [None]
  - BALANCE DISORDER [None]
  - CARDIAC FAILURE [None]
  - CEREBRAL INFARCTION [None]
  - COGNITIVE DISORDER [None]
  - COMPLETED SUICIDE [None]
  - CONFUSIONAL STATE [None]
  - DECREASED APPETITE [None]
  - DEHYDRATION [None]
  - DEPRESSION [None]
  - DEVELOPMENTAL COORDINATION DISORDER [None]
  - DISORIENTATION [None]
  - DIZZINESS [None]
  - DIZZINESS POSTURAL [None]
  - ENTEROCOCCAL INFECTION [None]
  - FACIAL PALSY [None]
  - FAECAL INCONTINENCE [None]
  - FALL [None]
  - FATIGUE [None]
  - FEAR [None]
  - HEPATIC CYST [None]
  - HYPOTENSION [None]
  - HYPOVOLAEMIA [None]
  - HYPOXIA [None]
  - IRRITABILITY [None]
  - JAUNDICE [None]
  - LETHARGY [None]
  - MALAISE [None]
  - MENTAL IMPAIRMENT [None]
  - METASTASIS [None]
  - MOOD SWINGS [None]
  - MYOCARDIAL INFARCTION [None]
  - NEOPLASM [None]
  - OEDEMA PERIPHERAL [None]
  - OVARIAN CYST [None]
  - OVERDOSE [None]
  - PAIN IN EXTREMITY [None]
  - PALLOR [None]
  - PALPITATIONS [None]
  - POOR VENOUS ACCESS [None]
  - PSYCHOTIC DISORDER [None]
  - RENAL FAILURE ACUTE [None]
  - RESPIRATORY DISTRESS [None]
  - RESPIRATORY RATE INCREASED [None]
  - SCREAMING [None]
  - SOMNOLENCE [None]
  - STRESS [None]
  - SYNCOPE [None]
  - URINARY INCONTINENCE [None]
  - URINARY TRACT INFECTION [None]
  - WEIGHT DECREASED [None]
